FAERS Safety Report 4533612-5 (Version None)
Quarter: 2004Q4

REPORT INFORMATION
  Report Type: 
  Country: None (occurrence: None)
  Receive Date: 20041210
  Receipt Date: 20040322
  Transmission Date: 20050328
  Serious: No
  Sender: FDA-Public Use
  Company Number: 04P-163-0254770-00

PATIENT
  Sex: Female

DRUGS (1)
  1. MERIDIA [Suspect]
     Dates: start: 19970101, end: 19990301

REACTIONS (1)
  - MYOCARDIAL INFARCTION [None]
